FAERS Safety Report 4832425-4 (Version None)
Quarter: 2005Q4

REPORT INFORMATION
  Report Type: 
  Country: None (occurrence: None)
  Receive Date: 20051121
  Receipt Date: 20050825
  Transmission Date: 20060501
  Serious: Yes (Hospitalization, Other)
  Sender: FDA-Public Use
  Company Number: US-BRISTOL-MYERS SQUIBB COMPANY-13089545

PATIENT
  Age: 72 Year
  Sex: Female
  Weight: 80 kg

DRUGS (3)
  1. CETUXIMAB [Suspect]
     Indication: COLON CANCER
     Dosage: 250 MG/M2 (488 MG) EVERY 21 DAYS
     Route: 042
     Dates: start: 20050817, end: 20050817
  2. IRINOTECAN HCL [Suspect]
     Indication: COLON CANCER
     Dosage: 200 MG/M2 EVERY WEEK
     Route: 042
     Dates: start: 20050810, end: 20050810
  3. CAPECITABINE [Suspect]
     Indication: COLON CANCER
     Dosage: DAYS 1-14 EVERY 21 DAYS
     Route: 048
     Dates: start: 20050810, end: 20050817

REACTIONS (7)
  - ATRIAL FIBRILLATION [None]
  - DEHYDRATION [None]
  - DELIRIUM [None]
  - INTESTINAL ISCHAEMIA [None]
  - MALNUTRITION [None]
  - POSTOPERATIVE INFECTION [None]
  - SMALL INTESTINAL OBSTRUCTION [None]
